FAERS Safety Report 21669050 (Version 1)
Quarter: 2022Q4

REPORT INFORMATION
  Report Type: Spontaneous
  Country: SA (occurrence: SA)
  Receive Date: 20221201
  Receipt Date: 20221201
  Transmission Date: 20230113
  Serious: Yes (Death, Other)
  Sender: FDA-Public Use
  Company Number: SA-009507513-2211SAU009616

PATIENT
  Sex: Female

DRUGS (2)
  1. PEMBROLIZUMAB [Suspect]
     Active Substance: PEMBROLIZUMAB
     Indication: Triple negative breast cancer
     Dosage: 200 MG EVERY 3 WEEKS
  2. CARBOPLATIN\GEMCITABINE [Suspect]
     Active Substance: CARBOPLATIN\GEMCITABINE
     Indication: Triple negative breast cancer
     Dosage: UNK

REACTIONS (1)
  - Malignant neoplasm progression [Fatal]
